FAERS Safety Report 6111378-5 (Version None)
Quarter: 2009Q1

REPORT INFORMATION
  Report Type: 
  Country: None (occurrence: None)
  Receive Date: 20090311
  Receipt Date: 20090306
  Transmission Date: 20090719
  Serious: Yes (Hospitalization)
  Sender: FDA-Public Use
  Company Number: B0561338A

PATIENT
  Age: 26 Year
  Sex: Female

DRUGS (3)
  1. LAMICTAL [Suspect]
     Indication: EPILEPSY
     Dosage: 25MG SINGLE DOSE
     Route: 048
     Dates: start: 20090211, end: 20090211
  2. CLONAZEPAM [Concomitant]
     Indication: EPILEPSY
     Dosage: 1DROP SINGLE DOSE
     Route: 048
     Dates: start: 20090211, end: 20090211
  3. DEPAKENE [Concomitant]
     Indication: EPILEPSY
     Dosage: 500MG TWICE PER DAY
     Route: 048
     Dates: start: 20060101

REACTIONS (6)
  - ATAXIA [None]
  - BALANCE DISORDER [None]
  - DIARRHOEA [None]
  - DIZZINESS [None]
  - HEADACHE [None]
  - VOMITING [None]
